FAERS Safety Report 14939473 (Version 3)
Quarter: 2019Q1

REPORT INFORMATION
  Report Type: Spontaneous
  Country: JP (occurrence: JP)
  Receive Date: 20180525
  Receipt Date: 20190114
  Transmission Date: 20190417
  Serious: Yes (Other)
  Sender: FDA-Public Use
  Company Number: JP-SEATTLE GENETICS-2016SGN01188

PATIENT
  Age: 33 Year
  Sex: Male

DRUGS (3)
  1. ADCETRIS [Suspect]
     Active Substance: BRENTUXIMAB VEDOTIN
     Dosage: 1.2 MG/KG, Q21D
     Route: 041
  2. ADCETRIS [Suspect]
     Active Substance: BRENTUXIMAB VEDOTIN
     Dosage: 1.2 MG/KG, UNK
     Route: 041
  3. ADCETRIS [Suspect]
     Active Substance: BRENTUXIMAB VEDOTIN
     Indication: HODGKIN^S DISEASE NODULAR SCLEROSIS RECURRENT
     Dosage: 1.8 MG/KG, Q21D
     Route: 041

REACTIONS (4)
  - Fatigue [Unknown]
  - Dysgeusia [Unknown]
  - Neuropathy peripheral [Not Recovered/Not Resolved]
  - Neurogenic bladder [Not Recovered/Not Resolved]
